FAERS Safety Report 9835041 (Version 2)
Quarter: 2014Q2

REPORT INFORMATION
  Report Type: Spontaneous
  Country: US (occurrence: US)
  Receive Date: 20140122
  Receipt Date: 20140424
  Transmission Date: 20141212
  Serious: Yes (Death)
  Sender: FDA-Public Use
  Company Number: US-B.I. PHARMACEUTICALS,INC./RIDGEFIELD-2014-BI-02701BP

PATIENT
  Age: 81 Year
  Sex: Female
  Weight: 55.34 kg

DRUGS (11)
  1. PRADAXA [Suspect]
     Indication: ATRIAL FIBRILLATION
     Dosage: 300 MG
     Route: 065
     Dates: start: 20110429, end: 20130914
  2. SOTALOL HCL [Concomitant]
     Dosage: 80 MG
     Route: 065
  3. LASIX [Concomitant]
     Dosage: 20 MG
     Route: 065
  4. SIMVASTATIN [Concomitant]
     Dosage: 20 MG
     Route: 065
  5. POTASSIUM CHLORIDE [Concomitant]
     Dosage: 10 MEQ
     Route: 065
  6. ASPIRIN [Concomitant]
     Dosage: 325 MG
     Route: 065
  7. TRICOR [Concomitant]
     Dosage: 48 MG
     Route: 065
  8. ATIVAN [Concomitant]
     Route: 065
  9. ANTIVERT [Concomitant]
     Route: 065
  10. METFORMIN HCL [Concomitant]
     Dosage: 1000 MG
     Route: 065
  11. LEVOTHYROXINE SODIUM [Concomitant]
     Dosage: 100 MCG
     Route: 065

REACTIONS (3)
  - Gastrointestinal haemorrhage [Fatal]
  - Cardiac arrest [Fatal]
  - Haemorrhagic anaemia [Fatal]
